FAERS Safety Report 5902085-X (Version None)
Quarter: 2008Q3

REPORT INFORMATION
  Report Type: 
  Country: None (occurrence: None)
  Receive Date: 20080919
  Receipt Date: 20080813
  Transmission Date: 20090109
  Serious: No
  Sender: FDA-Public Use
  Company Number: US-WYE-H05586808

PATIENT
  Age: 55 Year
  Sex: Female
  Weight: 75.82 kg

DRUGS (6)
  1. PRISTIQ [Suspect]
     Indication: DEPRESSION
     Dosage: 50 MG 1X PER 1 DAY, ORAL
     Route: 048
     Dates: start: 20080805, end: 20080808
  2. ERGOTAMINE (ERGOTAMINE) [Concomitant]
  3. BISOPROLOL FUMARATE AND HYDROCHLOROTHIAZIDE [Concomitant]
  4. TRAZODONE HCL [Concomitant]
  5. BUSPAR [Concomitant]
  6. PREMPRO (CONJUGATED ESTROGENS 0.3MG/MEDROXYPROGESTERONE ACETATE 1.5MG) [Concomitant]

REACTIONS (5)
  - DIARRHOEA [None]
  - DIZZINESS [None]
  - HEART RATE INCREASED [None]
  - NAUSEA [None]
  - VOMITING [None]
